FAERS Safety Report 7430103-9 (Version None)
Quarter: 2011Q2

REPORT INFORMATION
  Report Type: 
  Country: None (occurrence: None)
  Receive Date: 20110421
  Receipt Date: 20100818
  Transmission Date: 20111010
  Serious: No
  Sender: FDA-Public Use
  Company Number: US-ASTRAZENECA-2010SE39003

PATIENT

DRUGS (2)
  1. TOPROL-XL [Suspect]
     Route: 048
  2. TOPAMAX [Suspect]
     Route: 065

REACTIONS (4)
  - PRESYNCOPE [None]
  - DRUG DISPENSING ERROR [None]
  - ASTHENIA [None]
  - DIZZINESS [None]
